FAERS Safety Report 8240083-4 (Version None)
Quarter: 2012Q1

REPORT INFORMATION
  Report Type: 
  Country: None (occurrence: None)
  Receive Date: 20120328
  Receipt Date: 20120323
  Transmission Date: 20120608
  Serious: Yes (Life-Threatening)
  Sender: FDA-Public Use
  Company Number: US-JNJFOC-20120312630

PATIENT
  Sex: Male
  Weight: 140 kg

DRUGS (26)
  1. AVAPRO [Concomitant]
     Indication: HYPERTENSION
     Dosage: EVERY MORNING
     Route: 048
     Dates: start: 20020101
  2. VANTAS [Concomitant]
     Indication: CANCER HORMONAL THERAPY
     Route: 065
     Dates: start: 20090716
  3. VANTAS [Concomitant]
     Route: 065
     Dates: start: 20061001
  4. LANTUS [Concomitant]
     Indication: DIABETES MELLITUS
     Route: 058
     Dates: start: 20070801
  5. NOVOLOG [Concomitant]
     Dosage: EVERY EVENING
     Route: 058
     Dates: start: 20070801
  6. TETRACYCLINE [Concomitant]
     Indication: ROSACEA
     Route: 048
     Dates: start: 19970131
  7. TORSEMIDE [Concomitant]
     Indication: HYPERTENSION
     Route: 048
     Dates: start: 20100305, end: 20101230
  8. TORSEMIDE [Concomitant]
     Route: 048
     Dates: start: 20101230, end: 20110811
  9. IBUPROFEN (ADVIL) [Concomitant]
     Indication: BACK PAIN
     Route: 048
     Dates: start: 20110901
  10. ABIRATERONE ACETATE [Suspect]
     Indication: PROSTATE CANCER METASTATIC
     Route: 048
     Dates: start: 20090716, end: 20120323
  11. ASPIRIN [Concomitant]
     Indication: CARDIOVASCULAR EVENT PROPHYLAXIS
     Route: 048
     Dates: start: 20000101
  12. CLARINEX [Concomitant]
     Indication: MULTIPLE ALLERGIES
     Route: 048
     Dates: start: 20060401
  13. TRAMADOL HCL [Concomitant]
     Indication: CANCER PAIN
     Route: 048
     Dates: start: 20111121
  14. LASIX [Concomitant]
     Indication: OEDEMA PERIPHERAL
     Route: 048
     Dates: start: 20110501
  15. CARTIA XT [Concomitant]
     Indication: HYPERTENSION
     Route: 048
     Dates: start: 20010701
  16. SINGULAIR [Concomitant]
     Indication: MULTIPLE ALLERGIES
     Route: 048
     Dates: start: 20060401
  17. PLAVIX [Concomitant]
     Indication: ARTERIOSCLEROSIS
     Route: 048
     Dates: start: 20000901
  18. FLOMAX [Concomitant]
     Indication: URINARY TRACT DISORDER
     Route: 048
     Dates: start: 20091130
  19. CALTRATE + D [Concomitant]
     Indication: MEDICAL DIET
     Route: 048
     Dates: start: 20100128
  20. ABIRATERONE ACETATE [Suspect]
     Route: 048
  21. PREDNISONE TAB [Suspect]
     Indication: PROSTATE CANCER METASTATIC
     Route: 048
     Dates: start: 20090716
  22. AVAPRO [Concomitant]
     Dosage: EVERY EVENING
     Route: 048
     Dates: start: 20020101
  23. COREG [Concomitant]
     Indication: CORONARY ARTERY DISEASE
     Route: 048
     Dates: start: 20050901
  24. NOVOLOG [Concomitant]
     Indication: DIABETES MELLITUS
     Dosage: EVERY MORNING
     Route: 058
     Dates: start: 20070801
  25. SIMCOR [Concomitant]
     Indication: HYPERLIPIDAEMIA
     Route: 048
     Dates: start: 20080801
  26. TORSEMIDE [Concomitant]
     Route: 048
     Dates: start: 20110811

REACTIONS (1)
  - HYPERURICAEMIA [None]
